FAERS Safety Report 13351354 (Version 2)
Quarter: 2017Q1

REPORT INFORMATION
  Report Type: Report from Study
  Country: DE (occurrence: DE)
  Receive Date: 20170320
  Receipt Date: 20170323
  Transmission Date: 20170429
  Serious: Yes (Death)
  Sender: FDA-Public Use
  Company Number: PHHY2017DE042027

PATIENT
  Sex: Male
  Weight: 73 kg

DRUGS (8)
  1. COSENTYX [Suspect]
     Active Substance: SECUKINUMAB
     Dosage: 300 MG, PER APPLICATION, PRE-FILLED PEN
     Route: 058
     Dates: start: 20161107
  2. COSENTYX [Suspect]
     Active Substance: SECUKINUMAB
     Indication: PSORIASIS
     Dosage: 300 MG, PER APPLICATION, PRE-FILLED PEN
     Route: 058
     Dates: start: 20160817
  3. COSENTYX [Suspect]
     Active Substance: SECUKINUMAB
     Dosage: 300 MG, PER APPLICATION, PRE-FILLED PEN
     Route: 058
     Dates: start: 20161207
  4. COSENTYX [Suspect]
     Active Substance: SECUKINUMAB
     Dosage: 300 MG, PER APPLICATION, PRE-FILLED PEN
     Route: 058
     Dates: start: 20160907
  5. COSENTYX [Suspect]
     Active Substance: SECUKINUMAB
     Dosage: 300 MG, PER APPLICATION, PRE-FILLED PEN
     Route: 058
     Dates: start: 20160831
  6. COSENTYX [Suspect]
     Active Substance: SECUKINUMAB
     Dosage: 300 MG, PER APPLICATION, PRE-FILLED PEN
     Route: 058
     Dates: start: 20160824
  7. COSENTYX [Suspect]
     Active Substance: SECUKINUMAB
     Dosage: 300 MG, PER APPLICATION, PRE-FILLED PEN
     Route: 058
     Dates: start: 20161007
  8. COSENTYX [Suspect]
     Active Substance: SECUKINUMAB
     Dosage: 300 MG, PER APPLICATION, PRE-FILLED PEN
     Route: 058
     Dates: start: 20160914

REACTIONS (1)
  - Completed suicide [Fatal]

NARRATIVE: CASE EVENT DATE: 20170316
